FAERS Safety Report 7202100-X (Version None)
Quarter: 2010Q4

REPORT INFORMATION
  Report Type: 
  Country: None (occurrence: None)
  Receive Date: 20101229
  Receipt Date: 20101220
  Transmission Date: 20110411
  Serious: Yes (Hospitalization)
  Sender: FDA-Public Use
  Company Number: FR-ASTRAZENECA-2010SE59587

PATIENT
  Age: 904 Month
  Sex: Male

DRUGS (9)
  1. NEXIUM [Suspect]
     Route: 048
     Dates: start: 20040101
  2. RAMIPRIL [Suspect]
     Route: 048
     Dates: start: 20040101, end: 20100101
  3. PREVISCAN [Suspect]
     Route: 048
     Dates: start: 20040101
  4. NITRODERM [Suspect]
     Route: 048
     Dates: start: 20040101
  5. HEMIGOXINE [Suspect]
     Route: 048
     Dates: start: 20040101
  6. LASIX [Suspect]
     Route: 048
     Dates: start: 20040101
  7. CARDENSIEL [Suspect]
     Route: 048
     Dates: start: 20040101
  8. ALLOPURINOL [Suspect]
     Route: 048
     Dates: start: 20040101
  9. KARDEGIC [Suspect]
     Route: 048
     Dates: start: 20100101

REACTIONS (1)
  - PEMPHIGOID [None]
